FAERS Safety Report 8904751 (Version 1)
Quarter: 2012Q4

REPORT INFORMATION
  Report Type: 
  Country: US (occurrence: US)
  Receive Date: 20121113
  Receipt Date: 20121113
  Transmission Date: 20130627
  Serious: No
  Sender: FDA-Public Use
  Company Number: US-009507513-1211USA003283

PATIENT
  Sex: Female

DRUGS (2)
  1. ASMANEX TWISTHALER [Suspect]
     Indication: HYPERSENSITIVITY
     Dosage: 220 Microgram, bid
     Route: 055
     Dates: start: 201208
  2. ASMANEX TWISTHALER [Suspect]
     Dosage: 220 Microgram, bid
     Route: 055

REACTIONS (3)
  - Therapeutic response decreased [Unknown]
  - Bronchitis [Unknown]
  - Product quality issue [Unknown]
